FAERS Safety Report 16809285 (Version 4)
Quarter: 2020Q1

REPORT INFORMATION
  Report Type: Spontaneous
  Country: US (occurrence: US)
  Receive Date: 20190916
  Receipt Date: 20200206
  Transmission Date: 20200409
  Serious: No
  Sender: FDA-Public Use
  Company Number: US-HTU-2018US017716

PATIENT
  Age: 66 Year
  Sex: Female

DRUGS (4)
  1. VALCHLOR [Suspect]
     Active Substance: MECHLORETHAMINE
     Dosage: UNK, 3/WEEK MONDAY, WEDNESDAY, FRIDAY
     Route: 061
  2. VALCHLOR [Suspect]
     Active Substance: MECHLORETHAMINE
     Dosage: UNK
  3. VALCHLOR [Suspect]
     Active Substance: MECHLORETHAMINE
     Dosage: THIN FILM ONCE DAILY
  4. VALCHLOR [Suspect]
     Active Substance: MECHLORETHAMINE
     Indication: CUTANEOUS T-CELL LYMPHOMA
     Dosage: THIN FILM, QD
     Route: 061
     Dates: start: 20180920

REACTIONS (7)
  - Pruritus [Not Recovered/Not Resolved]
  - Exposure via skin contact [Recovered/Resolved]
  - Application site erythema [Recovered/Resolved]
  - Skin hyperpigmentation [Unknown]
  - Product container issue [Unknown]
  - Application site pain [Recovered/Resolved]
  - Skin irritation [Not Recovered/Not Resolved]

NARRATIVE: CASE EVENT DATE: 201809
